FAERS Safety Report 22273920 (Version 2)
Quarter: 2023Q2

REPORT INFORMATION
  Report Type: Spontaneous
  Country: MY (occurrence: MY)
  Receive Date: 20230502
  Receipt Date: 20230527
  Transmission Date: 20230721
  Serious: Yes (Death, Life-Threatening, Hospitalization, Other)
  Sender: FDA-Public Use
  Company Number: MY-MLMSERVICE-2023041742283091

PATIENT
  Age: 51 Year
  Sex: Male
  Weight: 67.5 kg

DRUGS (11)
  1. ETOPOSIDE [Suspect]
     Active Substance: ETOPOSIDE
     Indication: Haemophagocytic lymphohistiocytosis
     Dosage: D1,4,8,11,14 ( D1-20 MAY 2019) ETOPOSIDE (150 MG/M^2) IN N/SALINE 1L
     Route: 042
     Dates: start: 20190520, end: 20190611
  2. THYMOCYTE IMMUNE GLOBULIN NOS [Suspect]
     Active Substance: THYMOCYTE IMMUNE GLOBULIN NOS
     Indication: Aplastic anaemia
     Dosage: D1-4  ANTITHYMOCYTE GLOBULIN (EQUINE) (40MG/KG) IN N/SALINE 1L
     Route: 042
     Dates: start: 20190510, end: 20190514
  3. DEXAMETHASONE [Suspect]
     Active Substance: DEXAMETHASONE
     Indication: Haemophagocytic lymphohistiocytosis
     Dosage: D1,4,8,11,14 (D1-20 MAY 2019) DEXAMETHASONE (10MG/ M^2) - 20MG DAILY
     Dates: start: 20190520, end: 20190611
  4. CYCLOSPORINE [Suspect]
     Active Substance: CYCLOSPORINE
     Indication: Aplastic anaemia
     Dosage: D1 CYCLOSPORIN (3MG/KG) 200MG BD- CYCLE 1 OF 1
     Dates: start: 20190510, end: 201905
  5. METHYLPREDNISOLONE [Suspect]
     Active Substance: METHYLPREDNISOLONE
     Indication: Aplastic anaemia
     Dosage: D1-4 (10-14 MAY 2019) METHYLPREDNISOLONE (1MG/KG) IN N/SALINE 100ML FOR IV INFUSION OVER 30 MINUTES
     Route: 042
     Dates: start: 20190510, end: 20190514
  6. SODIUM CHLORIDE [Concomitant]
     Active Substance: SODIUM CHLORIDE
     Dosage: D1,4,8,11,14 ( D1-20 MAY 2019) ETOPOSIDE (150 MG/M^2) IN N/SALINE 1L FOR IV INFUSION
     Route: 042
     Dates: start: 20190520, end: 20190611
  7. MESALAMINE [Concomitant]
     Active Substance: MESALAMINE
     Indication: Colitis ulcerative
  8. ALLOPURINOL [Concomitant]
     Active Substance: ALLOPURINOL
     Indication: Colitis ulcerative
  9. AZATHIOPRINE [Concomitant]
     Active Substance: AZATHIOPRINE
     Indication: Colitis ulcerative
  10. SODIUM CHLORIDE [Concomitant]
     Active Substance: SODIUM CHLORIDE
     Dosage: D1-4 (10-14 MAY 2019) METHYLPREDNISOLONE (1MG/KG) IN N/SALINE 100ML FOR IV INFUSION
     Route: 042
     Dates: start: 20190510, end: 20190514
  11. SODIUM CHLORIDE [Concomitant]
     Active Substance: SODIUM CHLORIDE
     Dosage: D1-4  ANTITHYMOCYTE GLOBULIN (EQUINE) (40MG/KG) IN N/SALINE 1L
     Route: 042
     Dates: start: 20190510, end: 20190514

REACTIONS (4)
  - Pseudomonal sepsis [Fatal]
  - Fournier^s gangrene [Fatal]
  - Systemic candida [Fatal]
  - Pseudomonal bacteraemia [Fatal]

NARRATIVE: CASE EVENT DATE: 20190501
